FAERS Safety Report 6144007-5 (Version None)
Quarter: 2009Q2

REPORT INFORMATION
  Report Type: 
  Country: None (occurrence: None)
  Receive Date: 20090406
  Receipt Date: 20090331
  Transmission Date: 20091009
  Serious: Yes (Other)
  Sender: FDA-Public Use
  Company Number: RU-BAYER-200917627GPV

PATIENT
  Age: 30 Year
  Sex: Female

DRUGS (2)
  1. BETAFERON [Suspect]
     Indication: MULTIPLE SCLEROSIS
     Route: 058
     Dates: start: 20090201, end: 20090329
  2. SULFASALAZINE [Concomitant]
     Indication: CROHN'S DISEASE
     Dosage: TOTAL DAILY DOSE: 1500 MG
     Route: 048

REACTIONS (1)
  - RECTAL HAEMORRHAGE [None]
